FAERS Safety Report 13081518 (Version 1)
Quarter: 2016Q4

REPORT INFORMATION
  Report Type: Spontaneous
  Country: US (occurrence: US)
  Receive Date: 20161230
  Receipt Date: 20161230
  Transmission Date: 20170207
  Serious: Yes (Hospitalization)
  Sender: FDA-Public Use
  Company Number: None

PATIENT
  Age: 58 Year
  Sex: Male

DRUGS (12)
  1. SIMVAST [Concomitant]
  2. HYDROXYZ [Concomitant]
     Active Substance: HYDROXYZINE HYDROCHLORIDE
  3. AFINITOR [Suspect]
     Active Substance: EVEROLIMUS
     Indication: RENAL CANCER
     Route: 048
     Dates: start: 20161101
  4. AMARYL [Concomitant]
     Active Substance: GLIMEPIRIDE
  5. OXYCODONE [Concomitant]
     Active Substance: OXYCODONE
  6. ORTHOVISC [Concomitant]
     Active Substance: HYALURONIC ACID
  7. TRADJENTA [Concomitant]
     Active Substance: LINAGLIPTIN
  8. GLIMPERIDE [Concomitant]
     Active Substance: GLIMEPIRIDE
  9. OMEPRAZOLE. [Concomitant]
     Active Substance: OMEPRAZOLE
  10. ALLOPURINOL. [Concomitant]
     Active Substance: ALLOPURINOL
  11. FLOMAX [Concomitant]
     Active Substance: TAMSULOSIN HYDROCHLORIDE
  12. SULFASALAZINE DELAYED-RELEASE [Concomitant]
     Active Substance: SULFASALAZINE

REACTIONS (2)
  - Stomatitis [None]
  - Oropharyngeal pain [None]
